FAERS Safety Report 9034204 (Version 1)
Quarter: 2013Q1

REPORT INFORMATION
  Report Type: Spontaneous
  Country: US (occurrence: None)
  Receive Date: 20130116
  Receipt Date: 20130116
  Transmission Date: 20140127
  Serious: Yes (Death, Life-Threatening, Hospitalization)
  Sender: FDA-Public Use
  Company Number: None

PATIENT
  Age: 58 Year
  Sex: Female
  Weight: 95.26 kg

DRUGS (1)
  1. CYMBALTA [Suspect]
     Indication: FIBROMYALGIA
     Route: 048
     Dates: start: 20120901, end: 20121216

REACTIONS (7)
  - Cerebral haemorrhage [None]
  - Intracranial pressure increased [None]
  - Brain herniation [None]
  - Pulmonary embolism [None]
  - Infusion site cellulitis [None]
  - Intracranial venous sinus thrombosis [None]
  - Headache [None]
